FAERS Safety Report 4683725-2 (Version None)
Quarter: 2005Q2

REPORT INFORMATION
  Report Type: 
  Country: None (occurrence: None)
  Receive Date: 20050607
  Receipt Date: 20050525
  Transmission Date: 20051028
  Serious: Yes (Hospitalization)
  Sender: FDA-Public Use
  Company Number: US-KINGPHARMUSA00001-K200500735

PATIENT
  Age: 74 Year
  Sex: Male

DRUGS (5)
  1. ALTACE [Suspect]
     Dosage: 10 MG, QD
     Route: 048
     Dates: start: 20041230, end: 20050106
  2. METFORMIN HCL [Suspect]
     Dosage: 2 G, QD
     Route: 048
     Dates: start: 20041230, end: 20050106
  3. PRAVASTATIN SODIUM [Concomitant]
     Dosage: 20 MG, UNK
     Route: 048
  4. ASASANTIN - SLOW RELEASE [Concomitant]
     Dosage: 2 CAPSULE, UNK
     Route: 048
  5. GLICLAZIDE [Concomitant]
     Dosage: 30 MG, UNK
     Route: 048

REACTIONS (5)
  - ANOREXIA [None]
  - ASTHENIA [None]
  - HYPERKALAEMIA [None]
  - LETHARGY [None]
  - RENAL FAILURE [None]
